FAERS Safety Report 14388253 (Version 2)
Quarter: 2018Q2

REPORT INFORMATION
  Report Type: Spontaneous
  Country: US (occurrence: US)
  Receive Date: 20180115
  Receipt Date: 20180615
  Transmission Date: 20180711
  Serious: Yes (Other)
  Sender: FDA-Public Use
  Company Number: US-SA-2017SA211399

PATIENT
  Age: 39 Year
  Sex: Female

DRUGS (6)
  1. NEOSAR [Concomitant]
     Active Substance: CYCLOPHOSPHAMIDE
  2. EPIRUBICIN [Concomitant]
     Active Substance: EPIRUBICIN
  3. TAXOTERE [Suspect]
     Active Substance: DOCETAXEL
     Dosage: 172 MG,Q3W
     Route: 042
     Dates: start: 20120711, end: 20120711
  4. TAXOTERE [Suspect]
     Active Substance: DOCETAXEL
     Indication: BREAST CANCER FEMALE
     Dosage: 172 MG,Q3W
     Route: 042
     Dates: start: 20120509, end: 20120509
  5. CYTOXAN [Concomitant]
     Active Substance: CYCLOPHOSPHAMIDE
  6. ELLENCE [Concomitant]
     Active Substance: EPIRUBICIN HYDROCHLORIDE

REACTIONS (1)
  - Alopecia [Not Recovered/Not Resolved]

NARRATIVE: CASE EVENT DATE: 20130111
